FAERS Safety Report 9603681 (Version 1)
Quarter: 2013Q4

REPORT INFORMATION
  Report Type: Spontaneous
  Country: US (occurrence: US)
  Receive Date: 20131007
  Receipt Date: 20131007
  Transmission Date: 20140711
  Serious: No
  Sender: FDA-Public Use
  Company Number: US-PFIZER INC-2013281854

PATIENT
  Age: 7 Month
  Sex: Male
  Weight: 6.8 kg

DRUGS (4)
  1. CONCENTRATED MOTRIN INFANTS DYE-FREE DROPS [Suspect]
     Indication: PYREXIA
     Dosage: 1.25 ML ONCE A DAY
     Route: 048
     Dates: start: 20130902, end: 20130908
  2. BACTRIM [Concomitant]
     Indication: LIVER DISORDER
     Dosage: UNK
  3. URSOCOL [Concomitant]
     Indication: LIVER DISORDER
     Dosage: 0.8 ML, UNK
     Dates: start: 20130416
  4. AQUADEKS [Concomitant]
     Indication: LIVER DISORDER
     Dosage: 1 ML, UNK
     Dates: start: 20130416

REACTIONS (5)
  - Drug ineffective [Unknown]
  - Vomiting [Recovered/Resolved]
  - Irritability [Unknown]
  - Malaise [Unknown]
  - Product contamination [Recovered/Resolved]
